FAERS Safety Report 9380063 (Version 3)
Quarter: 2014Q2

REPORT INFORMATION
  Report Type: Report from Study
  Country: JP (occurrence: JP)
  Receive Date: 20130702
  Receipt Date: 20140515
  Transmission Date: 20141212
  Serious: Yes (Other)
  Sender: FDA-Public Use
  Company Number: JP-JNJFOC-20130620151

PATIENT
  Age: 51 Year
  Sex: Male
  Weight: 78 kg

DRUGS (13)
  1. STELARA [Suspect]
     Indication: PSORIASIS
     Route: 058
     Dates: start: 20130725
  2. STELARA [Suspect]
     Indication: PSORIASIS
     Route: 058
     Dates: start: 20130425, end: 20130425
  3. STELARA [Suspect]
     Indication: PSORIASIS
     Route: 058
     Dates: start: 20130207, end: 20130207
  4. STELARA [Suspect]
     Indication: PSORIASIS
     Route: 058
     Dates: start: 20121115, end: 20121115
  5. STELARA [Suspect]
     Indication: PSORIASIS
     Route: 058
     Dates: start: 20120726, end: 20120726
  6. STELARA [Suspect]
     Indication: PSORIASIS
     Route: 058
     Dates: start: 20120823, end: 20120823
  7. MYSER [Concomitant]
     Indication: PSORIASIS
     Route: 061
  8. OXAROL [Concomitant]
     Indication: PSORIASIS
     Route: 061
  9. ANTEBATE [Concomitant]
     Indication: PSORIASIS
     Route: 061
  10. PROPETO [Concomitant]
     Indication: PSORIASIS
     Route: 061
  11. ADALAT CR [Concomitant]
     Indication: HYPERTENSION
     Route: 048
  12. REZALTAS [Concomitant]
     Indication: HYPERTENSION
     Route: 048
  13. ZYLORIC [Concomitant]
     Indication: GOUT
     Route: 048

REACTIONS (2)
  - Liver disorder [Recovered/Resolved]
  - Gallbladder polyp [Unknown]
